FAERS Safety Report 14899243 (Version 5)
Quarter: 2018Q4

REPORT INFORMATION
  Report Type: Report from Study
  Country: US (occurrence: US)
  Receive Date: 20180516
  Receipt Date: 20181029
  Transmission Date: 20190204
  Serious: Yes (Hospitalization)
  Sender: FDA-Public Use
  Company Number: US-ROCHE-2000116

PATIENT
  Age: 77 Year
  Sex: Female
  Weight: 54 kg

DRUGS (7)
  1. VITAMIN K [Concomitant]
     Active Substance: PHYTONADIONE
     Route: 065
     Dates: start: 20170908, end: 20170920
  2. ATEZOLIZUMAB. [Suspect]
     Active Substance: ATEZOLIZUMAB
     Indication: NON-SMALL CELL LUNG CANCER
     Route: 042
  3. ZOFRAN [Concomitant]
     Active Substance: ONDANSETRON HYDROCHLORIDE
     Route: 065
     Dates: start: 20170905, end: 20170905
  4. POTASSIUM CHLORIDE. [Concomitant]
     Active Substance: POTASSIUM CHLORIDE
     Route: 065
     Dates: start: 20170910, end: 20170910
  5. POTASSIUM PHOSPHATE, MONOBASIC/SODIUM PHOSPHATE, MONOBASIC [Concomitant]
     Dosage: DOSE: 2 PACKETS
     Route: 065
     Dates: start: 20170907, end: 20170907
  6. POTASSIUM CHLORIDE. [Concomitant]
     Active Substance: POTASSIUM CHLORIDE
     Route: 065
     Dates: start: 20170907, end: 20170907
  7. POTASSIUM PHOSPHATE, MONOBASIC/SODIUM PHOSPHATE, MONOBASIC [Concomitant]
     Dosage: DOSE: 1 PACKET
     Route: 065
     Dates: start: 20170908, end: 20170908

REACTIONS (2)
  - Nausea [Recovered/Resolved]
  - Bile duct obstruction [Recovered/Resolved]

NARRATIVE: CASE EVENT DATE: 20170826
